FAERS Safety Report 25857774 (Version 1)
Quarter: 2025Q3

REPORT INFORMATION
  Report Type: Spontaneous
  Country: US (occurrence: US)
  Receive Date: 20250929
  Receipt Date: 20250929
  Transmission Date: 20251021
  Serious: Yes (Other)
  Sender: EXELIXIS
  Company Number: US-EXELIXIS-EXL-2025-011866

PATIENT
  Age: 62 Year
  Sex: Male

DRUGS (1)
  1. CABOMETYX [Suspect]
     Active Substance: CABOZANTINIB S-MALATE
     Indication: Pancreatic neuroendocrine tumour
     Dosage: 60 MG, QD
     Route: 048
     Dates: start: 202509

REACTIONS (2)
  - Encephalopathy [Unknown]
  - Dysphagia [Unknown]

NARRATIVE: CASE EVENT DATE: 20250901
